FAERS Safety Report 7597134-X (Version None)
Quarter: 2011Q3

REPORT INFORMATION
  Report Type: 
  Country: None (occurrence: None)
  Receive Date: 20110708
  Receipt Date: 20110629
  Transmission Date: 20111222
  Serious: Yes (Hospitalization)
  Sender: FDA-Public Use
  Company Number: US-ACTELION-A-US2011-49842

PATIENT

DRUGS (2)
  1. TRACLEER [Suspect]
     Indication: PULMONARY ARTERIAL HYPERTENSION
     Dosage: UNK
     Route: 048
     Dates: start: 20071016
  2. REVATIO [Concomitant]

REACTIONS (5)
  - CONDITION AGGRAVATED [None]
  - COUGH [None]
  - INCREASED UPPER AIRWAY SECRETION [None]
  - PULMONARY ARTERIAL HYPERTENSION [None]
  - INFLUENZA LIKE ILLNESS [None]
